FAERS Safety Report 7643839-1 (Version None)
Quarter: 2011Q3

REPORT INFORMATION
  Report Type: 
  Country: None (occurrence: None)
  Receive Date: 20110729
  Receipt Date: 20100628
  Transmission Date: 20111222
  Serious: No
  Sender: FDA-Public Use
  Company Number: US-GLAXOSMITHKLINE-A0867424A

PATIENT
  Age: 40 Year
  Sex: Female

DRUGS (8)
  1. IMITREX [Suspect]
     Indication: MIGRAINE
     Dosage: 1TAB AS REQUIRED
     Route: 048
     Dates: start: 20090601
  2. COUMADIN [Concomitant]
  3. FERROUS SULFATE TAB [Concomitant]
  4. OMEPRAZOLE [Concomitant]
  5. HUMIRA [Concomitant]
  6. PENTASA [Concomitant]
  7. IMURAN [Concomitant]
  8. CELEXA [Concomitant]

REACTIONS (1)
  - DRUG INEFFECTIVE [None]
